FAERS Safety Report 5860420-5 (Version None)
Quarter: 2008Q3

REPORT INFORMATION
  Report Type: 
  Country: None (occurrence: None)
  Receive Date: 20080827
  Receipt Date: 20080821
  Transmission Date: 20090109
  Serious: Yes (Other)
  Sender: FDA-Public Use
  Company Number: US-BOEHRINGER INGELHEIM GMBH, GERMANY-2008-BP-13194PF

PATIENT
  Sex: Female
  Weight: 73 kg

DRUGS (14)
  1. SPIRIVA [Suspect]
     Indication: DYSPNOEA
     Dates: start: 20070801, end: 20080815
  2. LIPITOR [Suspect]
     Indication: BLOOD CHOLESTEROL INCREASED
     Dates: start: 20080731, end: 20080805
  3. LISINOPRIL [Suspect]
     Dates: end: 20080805
  4. CARLLA XL [Concomitant]
     Indication: HYPERTENSION
  5. ASPIRIN [Concomitant]
  6. ACID CONTROL PILL [Concomitant]
  7. METFORMIN HCL [Concomitant]
  8. FLAX SEED [Concomitant]
  9. CINNAMON [Concomitant]
  10. FISH OIL [Concomitant]
  11. GARLIC [Concomitant]
  12. MULTI-VITAMINS [Concomitant]
  13. ATENOLOL [Concomitant]
  14. PEPCID [Concomitant]

REACTIONS (14)
  - BALANCE DISORDER [None]
  - DYSPHONIA [None]
  - DYSPNOEA [None]
  - ERYTHEMA [None]
  - GAIT DISTURBANCE [None]
  - IMPAIRED DRIVING ABILITY [None]
  - JOINT STIFFNESS [None]
  - MUSCULOSKELETAL STIFFNESS [None]
  - OCULAR HYPERAEMIA [None]
  - OEDEMA PERIPHERAL [None]
  - RASH [None]
  - SWELLING [None]
  - URTICARIA [None]
  - WEIGHT DECREASED [None]
